FAERS Safety Report 20463443 (Version 1)
Quarter: 2022Q1

REPORT INFORMATION
  Report Type: Spontaneous
  Country: US (occurrence: US)
  Receive Date: 20220211
  Receipt Date: 20220211
  Transmission Date: 20220423
  Serious: Yes (Other)
  Sender: FDA-Public Use
  Company Number: US-NOVARTISPH-NVSC2022US030428

PATIENT
  Age: 50 Year

DRUGS (6)
  1. RANITIDINE [Suspect]
     Active Substance: RANITIDINE
     Dosage: 150 MG,,DAILY,
     Route: 048
     Dates: start: 200001, end: 201401
  2. RANITIDINE [Suspect]
     Active Substance: RANITIDINE
     Indication: Neoplasm malignant
  3. RANITIDINE [Suspect]
     Active Substance: RANITIDINE
     Indication: Oesophagitis
  4. RANITIDINE [Suspect]
     Active Substance: RANITIDINE
     Dosage: 150 MG,,DAILY,
     Route: 048
     Dates: start: 200001, end: 201401
  5. RANITIDINE [Suspect]
     Active Substance: RANITIDINE
     Indication: Neoplasm malignant
  6. RANITIDINE [Suspect]
     Active Substance: RANITIDINE
     Indication: Oesophagitis

REACTIONS (2)
  - Oesophageal carcinoma [Unknown]
  - Incorrect dose administered [Unknown]

NARRATIVE: CASE EVENT DATE: 20120101
